FAERS Safety Report 5410877-9 (Version None)
Quarter: 2007Q3

REPORT INFORMATION
  Report Type: 
  Country: None (occurrence: None)
  Receive Date: 20070810
  Receipt Date: 20070730
  Transmission Date: 20080115
  Serious: Yes (Other)
  Sender: FDA-Public Use
  Company Number: PHMT2007CA01653

PATIENT
  Age: 36 Year
  Sex: Female

DRUGS (2)
  1. SANDOSTATIN LAR [Suspect]
     Indication: ACROMEGALY
     Dosage: 30 MG
     Route: 030
     Dates: start: 20070710
  2. TYLENOL (CAPLET) [Concomitant]
     Dosage: UNK, PRN

REACTIONS (8)
  - ABDOMINAL PAIN [None]
  - ANXIETY [None]
  - CEREBROVASCULAR ACCIDENT [None]
  - DIARRHOEA [None]
  - HEADACHE [None]
  - HYPERHIDROSIS [None]
  - NAUSEA [None]
  - VOMITING [None]
